FAERS Safety Report 13275492 (Version 1)
Quarter: 2017Q1

REPORT INFORMATION
  Report Type: Spontaneous
  Country: US (occurrence: US)
  Receive Date: 20170228
  Receipt Date: 20170228
  Transmission Date: 20170428
  Serious: Yes (Life-Threatening, Hospitalization, Other)
  Sender: FDA-Public Use
  Company Number: US-GLENMARK PHARMACEUTICALS-2017GMK026518

PATIENT
  Age: 62 Year
  Sex: Female

DRUGS (1)
  1. SULFAMETHOXAZOLE/TRIMETHOPRIM [Suspect]
     Active Substance: SULFAMETHOXAZOLE\TRIMETHOPRIM
     Indication: PRODUCT USED FOR UNKNOWN INDICATION
     Dosage: UNK, BID
     Route: 065

REACTIONS (6)
  - Hypotension [Recovered/Resolved]
  - Serositis [Recovered/Resolved]
  - Pleural effusion [Recovered/Resolved]
  - Cardiac tamponade [Recovered/Resolved]
  - Lupus-like syndrome [Recovered/Resolved]
  - Pericardial effusion [Recovered/Resolved]
